FAERS Safety Report 26038857 (Version 1)
Quarter: 2025Q4

REPORT INFORMATION
  Report Type: Spontaneous
  Country: US (occurrence: US)
  Receive Date: 20251113
  Receipt Date: 20251113
  Transmission Date: 20260118
  Serious: No
  Sender: UROGEN PHARMA
  Company Number: US-UROGEN PHARMA LTD.-2025-UGN-000169

PATIENT

DRUGS (4)
  1. ZUSDURI [Suspect]
     Active Substance: MITOMYCIN
     Indication: Product used for unknown indication
     Dosage: 17 MILLILITER (INSTILLATION)
     Dates: start: 20250918, end: 20250918
  2. ZUSDURI [Suspect]
     Active Substance: MITOMYCIN
     Dosage: 56 MILLILITER (INSTILLATION)
     Dates: start: 20251001, end: 20251001
  3. ZUSDURI [Suspect]
     Active Substance: MITOMYCIN
     Dosage: 56 MILLILITER (INSTILLATION)
     Dates: start: 20251008, end: 20251008
  4. ZUSDURI [Suspect]
     Active Substance: MITOMYCIN
     Dosage: 56 MILLILITER (INSTILLATION)
     Dates: start: 20251015, end: 20251015

REACTIONS (3)
  - Catheter site haemorrhage [Unknown]
  - Incorrect dose administered [Unknown]
  - Rash [Unknown]

NARRATIVE: CASE EVENT DATE: 20250918
